FAERS Safety Report 18125795 (Version 1)
Quarter: 2020Q3

REPORT INFORMATION
  Report Type: Spontaneous
  Country: US (occurrence: US)
  Receive Date: 20200807
  Receipt Date: 20200807
  Transmission Date: 20201103
  Serious: Yes (Death)
  Sender: FDA-Public Use
  Company Number: US-FRESENIUS KABI-FK202008191

PATIENT
  Age: 89 Year
  Sex: Female

DRUGS (2)
  1. VANCOMYCIN [Suspect]
     Active Substance: VANCOMYCIN
     Indication: ENDOCARDITIS
     Route: 065
  2. RIFAMPIN (MANUFACTURER UNKNOWN) [Suspect]
     Active Substance: RIFAMPIN
     Indication: ENDOCARDITIS
     Dosage: UNKNOWN
     Route: 065

REACTIONS (6)
  - Acute kidney injury [Fatal]
  - Hepatic encephalopathy [Fatal]
  - Leukocytosis [Fatal]
  - Drug-induced liver injury [Fatal]
  - Respiratory failure [Fatal]
  - Acute hepatic failure [Fatal]
